FAERS Safety Report 4335573-0 (Version None)
Quarter: 2004Q2

REPORT INFORMATION
  Report Type: 
  Country: None (occurrence: None)
  Receive Date: 20040406
  Receipt Date: 20040325
  Transmission Date: 20050107
  Serious: Yes (Hospitalization)
  Sender: FDA-Public Use
  Company Number: 04P-163-0254905

PATIENT
  Age: 57 Year
  Sex: Female
  Weight: 83.9154 kg

DRUGS (14)
  1. HUMIRA [Suspect]
     Indication: RHEUMATOID ARTHRITIS
     Dosage: SEE IMAGE
     Route: 058
     Dates: start: 20031003, end: 20040308
  2. HUMIRA [Suspect]
     Indication: RHEUMATOID ARTHRITIS
     Dosage: SEE IMAGE
     Route: 058
     Dates: start: 20040322
  3. METHOTREXATE SODIUM [Concomitant]
  4. CELECOXIB [Concomitant]
  5. PREDNISONE [Concomitant]
  6. LEVOTHYROXINE SODIUM [Concomitant]
  7. POSINOPRIL SODIUM [Concomitant]
  8. ATORVASTATIN [Concomitant]
  9. GLIPIZIDE [Concomitant]
  10. METFORMIN HYDROCHLORIDE [Concomitant]
  11. FOLIC ACID [Concomitant]
  12. ALENDRONATE SODIUM [Concomitant]
  13. ASPIRIN [Concomitant]
  14. CALCIUM [Concomitant]

REACTIONS (3)
  - DIVERTICULITIS [None]
  - DRUG INEFFECTIVE [None]
  - INTESTINAL OBSTRUCTION [None]
